FAERS Safety Report 5298120-5 (Version None)
Quarter: 2007Q1

REPORT INFORMATION
  Report Type: 
  Country: None (occurrence: None)
  Receive Date: 20070205
  Receipt Date: 20061016
  Transmission Date: 20070707
  Serious: Yes (Hospitalization)
  Sender: FDA-Public Use
  Company Number: US200609002488

PATIENT
  Age: 77 Year
  Sex: Female

DRUGS (6)
  1. EVISTA [Suspect]
     Indication: OSTEOPOROSIS
     Dosage: 60 MG, ORAL
     Route: 048
     Dates: start: 19990401, end: 20050401
  2. LISINOPRIL [Concomitant]
  3. SYNTHROID [Concomitant]
  4. TOPROL-XL [Concomitant]
  5. CELEBREX [Concomitant]
  6. FUROSEMIDE [Concomitant]

REACTIONS (3)
  - DEEP VEIN THROMBOSIS [None]
  - OEDEMA PERIPHERAL [None]
  - PAIN IN EXTREMITY [None]
